FAERS Safety Report 10912780 (Version 2)
Quarter: 2015Q2

REPORT INFORMATION
  Report Type: Spontaneous
  Country: ES (occurrence: ES)
  Receive Date: 20150313
  Receipt Date: 20150407
  Transmission Date: 20150821
  Serious: Yes (Hospitalization)
  Sender: FDA-Public Use
  Company Number: ES-PFIZER INC-2015085630

PATIENT
  Age: 51 Year
  Sex: Male

DRUGS (6)
  1. SANDOSTATIN [Concomitant]
     Active Substance: OCTREOTIDE ACETATE
     Indication: NEOPLASM MALIGNANT
     Dosage: 1 DF, EVERY 21 DAYS
     Route: 030
  2. SOMAVERT [Suspect]
     Active Substance: PEGVISOMANT
     Dosage: 30 MG, DAILY
     Dates: start: 201202
  3. HIPERTENE [Concomitant]
     Indication: HYPERTENSION
     Dosage: 20 MG, DAILY
  4. EUTIROX [Concomitant]
     Active Substance: LEVOTHYROXINE SODIUM
     Indication: THYROID DISORDER
     Dosage: 125 MG, DAILY
  5. HIDROALTESONA [Concomitant]
     Dosage: 20 MG, DAILY, (1/2 AT THE MORNING, 1/4 AFTER LUNCH AND 1/4 AFTER DINNER)
  6. EUCREAS [Concomitant]
     Active Substance: METFORMIN HYDROCHLORIDE\VILDAGLIPTIN
     Indication: TYPE 2 DIABETES MELLITUS
     Dosage: 1 DF, 2X/DAY

REACTIONS (1)
  - Tumour flare [Not Recovered/Not Resolved]
